FAERS Safety Report 19759170 (Version 1)
Quarter: 2021Q3

REPORT INFORMATION
  Report Type: Report from Study
  Country: US (occurrence: US)
  Receive Date: 20210827
  Receipt Date: 20210827
  Transmission Date: 20211014
  Serious: Yes (Hospitalization)
  Sender: FDA-Public Use
  Company Number: US-EXELIXIS-CABO-21043096

PATIENT
  Sex: Female
  Weight: 62.9 kg

DRUGS (1)
  1. CABOMETYX [Suspect]
     Active Substance: CABOZANTINIB S-MALATE
     Indication: RENAL CANCER
     Dosage: 40 MG, QD
     Route: 048
     Dates: start: 20210415

REACTIONS (4)
  - Blood potassium decreased [Recovering/Resolving]
  - Diarrhoea [Unknown]
  - Muscle strain [Not Recovered/Not Resolved]
  - Protein total decreased [Recovering/Resolving]
